FAERS Safety Report 9934662 (Version 1)
Quarter: 2014Q1

REPORT INFORMATION
  Report Type: Spontaneous
  Country: US (occurrence: US)
  Receive Date: 20140228
  Receipt Date: 20140228
  Transmission Date: 20141002
  Serious: No
  Sender: FDA-Public Use
  Company Number: US-ASTRAZENECA-2013SE64070

PATIENT
  Age: 65 Year
  Sex: Female
  Weight: 72.6 kg

DRUGS (5)
  1. METOPROLOL SUCCINATE [Suspect]
     Indication: CARDIAC DISORDER
     Route: 048
  2. TRIAMTERNE HCT [Concomitant]
     Indication: BLOOD PRESSURE
  3. XANAX [Concomitant]
     Indication: MULTIPLE ALLERGIES
  4. ZYRTEC [Concomitant]
     Indication: MULTIPLE ALLERGIES
  5. PREDNISONE [Concomitant]
     Indication: MULTIPLE ALLERGIES

REACTIONS (4)
  - Nausea [Unknown]
  - Diarrhoea [Unknown]
  - Asthenia [Unknown]
  - Intentional drug misuse [Unknown]
